FAERS Safety Report 25760770 (Version 2)
Quarter: 2025Q3

REPORT INFORMATION
  Report Type: Spontaneous
  Country: CN (occurrence: CN)
  Receive Date: 20250904
  Receipt Date: 20250909
  Transmission Date: 20251020
  Serious: Yes (Life-Threatening, Hospitalization)
  Sender: PFIZER
  Company Number: CN-PFIZER INC-PV202500105164

PATIENT
  Age: 59 Year
  Sex: Male
  Weight: 57.7 kg

DRUGS (2)
  1. CYTARABINE [Suspect]
     Active Substance: CYTARABINE
     Indication: Acute leukaemia
     Dosage: 5070 MG, 2X/DAY (THE ACTUAL MEDICATION FREQUENCY IS TWICE A DAY, ALTERNATE DAY)
     Route: 041
     Dates: start: 20250807, end: 20250811
  2. SODIUM CHLORIDE [Concomitant]
     Active Substance: SODIUM CHLORIDE
     Indication: Vehicle solution use
     Dosage: 500 ML, 2X/DAY (THE ACTUAL MEDICATION FREQUENCY IS TWICE A DAY, ALTERNATE DAY)
     Route: 041
     Dates: start: 20250807, end: 20250811

REACTIONS (2)
  - White blood cell count decreased [Not Recovered/Not Resolved]
  - Agranulocytosis [Not Recovered/Not Resolved]

NARRATIVE: CASE EVENT DATE: 20250815
